FAERS Safety Report 23753703 (Version 1)
Quarter: 2024Q2

REPORT INFORMATION
  Report Type: Spontaneous
  Country: BE (occurrence: BE)
  Receive Date: 20240417
  Receipt Date: 20240417
  Transmission Date: 20240716
  Serious: Yes (Hospitalization, Other)
  Sender: FDA-Public Use
  Company Number: BE-SUN PHARMACEUTICAL INDUSTRIES LTD-2024R1-437511

PATIENT
  Age: 63 Year
  Sex: Male

DRUGS (7)
  1. LISINOPRIL [Suspect]
     Active Substance: LISINOPRIL
     Indication: Product used for unknown indication
     Dosage: 10 MILLIGRAM, DAILY
     Route: 065
  2. ATORVASTATIN [Suspect]
     Active Substance: ATORVASTATIN
     Indication: Product used for unknown indication
     Dosage: 20 MILLIGRAM, DAILY
     Route: 065
  3. EZETIMIBE [Suspect]
     Active Substance: EZETIMIBE
     Indication: Product used for unknown indication
     Dosage: 10 MILLIGRAM, DAILY
     Route: 065
  4. GLICLAZIDE [Suspect]
     Active Substance: GLICLAZIDE
     Indication: Product used for unknown indication
     Dosage: 90 MILLIGRAM, DAILY
     Route: 065
  5. HYDROCHLOROTHIAZIDE [Suspect]
     Active Substance: HYDROCHLOROTHIAZIDE
     Indication: Product used for unknown indication
     Dosage: 12.5 MILLIGRAM, DAILY
     Route: 065
  6. METFORMIN [Suspect]
     Active Substance: METFORMIN HYDROCHLORIDE
     Indication: Product used for unknown indication
     Dosage: 1275 MILLIGRAM, DAILY(IN 2 DOSES)
     Route: 065
  7. TADALAFIL [Suspect]
     Active Substance: TADALAFIL
     Indication: Product used for unknown indication
     Dosage: 10 MILLIGRAM, PRN
     Route: 065

REACTIONS (2)
  - Hyperkalaemia [Not Recovered/Not Resolved]
  - Chronic kidney disease [Unknown]
